FAERS Safety Report 24432153 (Version 1)
Quarter: 2024Q4

REPORT INFORMATION
  Report Type: Spontaneous
  Country: CA (occurrence: CA)
  Receive Date: 20241014
  Receipt Date: 20241014
  Transmission Date: 20250115
  Serious: Yes (Hospitalization)
  Sender: SANDOZ
  Company Number: CA-SANDOZ-SDZ2024CA086682

PATIENT
  Age: 33 Year
  Weight: 42 kg

DRUGS (1)
  1. VANCOMYCIN HYDROCHLORIDE [Suspect]
     Active Substance: VANCOMYCIN HYDROCHLORIDE
     Indication: Product used for unknown indication
     Dosage: 1500 MG
     Route: 042

REACTIONS (3)
  - Liver function test increased [Unknown]
  - Rash [Unknown]
  - Drug reaction with eosinophilia and systemic symptoms [Unknown]
